FAERS Safety Report 10687283 (Version 1)
Quarter: 2014Q4

REPORT INFORMATION
  Report Type: Spontaneous
  Country: US (occurrence: None)
  Receive Date: 20141230
  Receipt Date: 20141230
  Transmission Date: 20150529
  Serious: Yes (Hospitalization)
  Sender: FDA-Public Use
  Company Number: FK201406421

PATIENT
  Age: 52 Year
  Sex: Female

DRUGS (9)
  1. CALCIUM GLUCONATE. [Suspect]
     Active Substance: CALCIUM GLUCONATE
     Indication: METASTATIC CARCINOID TUMOUR
     Route: 042
     Dates: start: 20141201
  2. LISINOPRIL. [Concomitant]
     Active Substance: LISINOPRIL
  3. SYNTHROID [Concomitant]
     Active Substance: LEVOTHYROXINE SODIUM
  4. POTASSIUM [Concomitant]
     Active Substance: POTASSIUM
  5. OXYCODONE [Concomitant]
     Active Substance: OXYCODONE
  6. OSCAL VITAMIN D (CALCITE D) [Concomitant]
  7. NORVASC [Concomitant]
     Active Substance: AMLODIPINE BESYLATE
  8. CLARITIN [Concomitant]
     Active Substance: LORATADINE
  9. MAGNESIUM PLUS PROTEIN (MAGNESIUM) [Concomitant]

REACTIONS (1)
  - Anaphylactic reaction [None]

NARRATIVE: CASE EVENT DATE: 20141215
